FAERS Safety Report 9294105 (Version 1)
Quarter: 2013Q1

REPORT INFORMATION
  Report Type: Spontaneous
  Country: US (occurrence: None)
  Receive Date: 20121227
  Receipt Date: 20121227
  Transmission Date: 20140127
  Serious: Yes (Other)
  Sender: FDA-Public Use
  Company Number: PHEH2011US012785

PATIENT
  Age: 65 Year
  Sex: Female
  Weight: 77.9 kg

DRUGS (5)
  1. EXJADE (*CGP 72670*) DISPERSIBLE TABLET [Suspect]
     Indication: IRON OVERLOAD
     Route: 048
     Dates: start: 20111228
  2. CITALOPRAM (CITALOPRAM) [Concomitant]
  3. BUPROPION SR (BUPROPION) [Concomitant]
  4. LISINOPRIL (LISINOPRIL) [Concomitant]
  5. DICYCLOMINE (DICYCLOVERINE) [Concomitant]

REACTIONS (3)
  - Urticaria [None]
  - Headache [None]
  - Pruritus [None]
